FAERS Safety Report 25985630 (Version 1)
Quarter: 2025Q4

REPORT INFORMATION
  Report Type: Spontaneous
  Country: US (occurrence: US)
  Receive Date: 20251031
  Receipt Date: 20251031
  Transmission Date: 20260118
  Serious: No
  Sender: Tarsus Pharmaceuticals
  Company Number: US-TARSUS PHARMACEUTICALS-TSP-US-2025-000912

PATIENT

DRUGS (1)
  1. XDEMVY [Suspect]
     Active Substance: LOTILANER
     Indication: Ocular demodicosis
     Dosage: 1 DROP, BID (1 DROP INTO BOTH EYES TWICE DAILY (IN THE MORNING AND IN THE EVENING))
     Route: 047
     Dates: start: 20250703, end: 20250827

REACTIONS (5)
  - Lip dry [Not Recovered/Not Resolved]
  - Cheilitis [Unknown]
  - Hypertension [Unknown]
  - Swelling face [Unknown]
  - Product use issue [Unknown]
